FAERS Safety Report 4285432-7 (Version None)
Quarter: 2004Q1

REPORT INFORMATION
  Report Type: 
  Country: None (occurrence: None)
  Receive Date: 20040202
  Receipt Date: 20040122
  Transmission Date: 20041129
  Serious: Yes (Hospitalization, Other)
  Sender: FDA-Public Use
  Company Number: HQWYE528422JAN04

PATIENT
  Age: 17 Month
  Sex: Female

DRUGS (3)
  1. CHILDREN'S ADVIL [Suspect]
     Indication: PYREXIA
     Dosage: ^80 MG X 4/D^; ORAL
     Route: 048
     Dates: start: 20010130, end: 20010208
  2. CHILDREN'S ADVIL [Suspect]
     Indication: VARICELLA
     Dosage: ^80 MG X 4/D^; ORAL
     Route: 048
     Dates: start: 20010130, end: 20010208
  3. ACETAMINOPHEN [Concomitant]

REACTIONS (6)
  - BACTERIAL INFECTION [None]
  - CELLULITIS [None]
  - DISEASE RECURRENCE [None]
  - ERYTHEMA [None]
  - GENERAL PHYSICAL HEALTH DETERIORATION [None]
  - SKIN LESION [None]
